FAERS Safety Report 13652121 (Version 1)
Quarter: 2017Q2

REPORT INFORMATION
  Report Type: Report from Study
  Country: BE (occurrence: BE)
  Receive Date: 20170614
  Receipt Date: 20170614
  Transmission Date: 20170830
  Serious: Yes (Hospitalization)
  Sender: FDA-Public Use
  Company Number: BE-AMGEN-BELCT2014003382

PATIENT
  Age: 74 Year
  Sex: Female
  Weight: 56.4 kg

DRUGS (22)
  1. CARBOPLATIN. [Concomitant]
     Active Substance: CARBOPLATIN
     Dosage: 493-750 MG, UNK
     Route: 042
     Dates: start: 20131024, end: 20131115
  2. BURINEX [Concomitant]
     Active Substance: BUMETANIDE
     Dosage: 1 MG, UNK
     Route: 048
     Dates: start: 20131007, end: 20131024
  3. ZOCOR [Concomitant]
     Active Substance: SIMVASTATIN
     Dosage: 40 MG, UNK
     Route: 048
     Dates: start: 1995
  4. DEXAMETHASONE. [Concomitant]
     Active Substance: DEXAMETHASONE
     Dosage: 20 MG, UNK
     Route: 048
     Dates: start: 20130627
  5. LIPITOR [Concomitant]
     Active Substance: ATORVASTATIN CALCIUM
     Dosage: 40 MG, UNK
     Route: 048
     Dates: start: 20131004, end: 20131024
  6. PACLITAXEL. [Concomitant]
     Active Substance: PACLITAXEL
     Dosage: 255 MG, UNK
     Route: 042
     Dates: start: 20131024
  7. CORUNO [Concomitant]
     Active Substance: MOLSIDOMINE
     Dosage: 16 MG, UNK
     Route: 048
     Dates: start: 1995
  8. ASAFLOW [Concomitant]
     Active Substance: ASPIRIN
     Dosage: 80 MG, UNK
     Route: 048
     Dates: start: 20131005, end: 20131023
  9. ZYRTEC [Concomitant]
     Active Substance: CETIRIZINE HYDROCHLORIDE
     Dosage: 10 MG, UNK
     Route: 048
     Dates: start: 20130627
  10. ENTEROL                            /00081601/ [Concomitant]
     Dosage: 250 MG, UNK
     Route: 048
     Dates: start: 201307
  11. ZANTAC [Concomitant]
     Active Substance: RANITIDINE HYDROCHLORIDE
     Dosage: 50-150 MG, UNK
     Route: 048
     Dates: start: 20130628
  12. CEDOCARD [Concomitant]
     Active Substance: ISOSORBIDE DINITRATE
     Dosage: 5 MG, UNK
     Route: 048
     Dates: start: 20131004
  13. EMCONCOR [Concomitant]
     Active Substance: BISOPROLOL FUMARATE
     Dosage: 5 MG, UNK
     Route: 048
     Dates: start: 20131009
  14. DULCOLAX (BISACODYL) [Concomitant]
     Active Substance: BISACODYL
     Dosage: 5 MG, UNK
     Route: 048
     Dates: start: 20131012
  15. PRADAXA [Concomitant]
     Active Substance: DABIGATRAN ETEXILATE MESYLATE
     Dosage: 150 MG, UNK
     Route: 048
     Dates: start: 20131016
  16. PEGFILGRASTIM [Concomitant]
     Active Substance: PEGFILGRASTIM
     Dosage: 6 MG, UNK
     Route: 058
     Dates: start: 20130807
  17. PHENERGAN [Concomitant]
     Active Substance: PROMETHAZINE HYDROCHLORIDE
     Dosage: 50 MG, UNK
     Route: 030
     Dates: start: 20130628
  18. AMG 386 [Suspect]
     Active Substance: TREBANANIB
     Indication: OVARIAN CANCER
     Dosage: UNK
     Route: 065
     Dates: start: 20130628
  19. CELEBREX [Concomitant]
     Active Substance: CELECOXIB
     Dosage: 200 MG, UNK
     Route: 048
     Dates: start: 2004
  20. ALDACTONE [Concomitant]
     Active Substance: SPIRONOLACTONE
     Dosage: 25 MG, UNK
     Route: 048
     Dates: start: 20131008
  21. CORDARONE [Concomitant]
     Active Substance: AMIODARONE HYDROCHLORIDE
     Dosage: 600 MG, UNK
     Route: 048
     Dates: start: 20131010, end: 20131023
  22. ALOXI [Concomitant]
     Active Substance: PALONOSETRON HYDROCHLORIDE
     Dosage: 250 MG, UNK
     Route: 042
     Dates: start: 20130628

REACTIONS (1)
  - Ascites [Recovered/Resolved]

NARRATIVE: CASE EVENT DATE: 20140115
